FAERS Safety Report 6782868-7 (Version None)
Quarter: 2010Q2

REPORT INFORMATION
  Report Type: 
  Country: None (occurrence: None)
  Receive Date: 20100617
  Receipt Date: 20100610
  Transmission Date: 20101027
  Serious: Yes (Life-Threatening, Hospitalization, Other)
  Sender: FDA-Public Use
  Company Number: 2010AC000122

PATIENT
  Age: 78 Year
  Sex: Female

DRUGS (5)
  1. DIGOXIN [Suspect]
     Dosage: 0.25 MG; ; PO
     Route: 048
     Dates: start: 20040301, end: 20080101
  2. COREG [Concomitant]
  3. PLAVIX [Concomitant]
  4. COZAAR [Concomitant]
  5. NEXIUM [Concomitant]

REACTIONS (25)
  - ASTHENIA [None]
  - BLOOD AMYLASE INCREASED [None]
  - BLOOD FOLATE INCREASED [None]
  - CACHEXIA [None]
  - CARDIOACTIVE DRUG LEVEL INCREASED [None]
  - CEREBRAL ATROPHY [None]
  - CONFUSIONAL STATE [None]
  - DECREASED APPETITE [None]
  - DEHYDRATION [None]
  - DEMENTIA [None]
  - ECONOMIC PROBLEM [None]
  - FATIGUE [None]
  - HYPOKALAEMIA [None]
  - IRON BINDING CAPACITY TOTAL DECREASED [None]
  - LETHARGY [None]
  - LIPASE INCREASED [None]
  - LYMPHADENOPATHY [None]
  - MENTAL STATUS CHANGES [None]
  - MULTIPLE INJURIES [None]
  - RENAL CYST [None]
  - SERUM FERRITIN INCREASED [None]
  - SURGERY [None]
  - THERAPEUTIC AGENT TOXICITY [None]
  - WEIGHT DECREASED [None]
  - WHITE BLOOD CELL COUNT DECREASED [None]
